FAERS Safety Report 6968226-0 (Version None)
Quarter: 2010Q3

REPORT INFORMATION
  Report Type: 
  Country: None (occurrence: None)
  Receive Date: 20100907
  Receipt Date: 20100830
  Transmission Date: 20110219
  Serious: Yes (Hospitalization)
  Sender: FDA-Public Use
  Company Number: DE-ROCHE-706213

PATIENT
  Sex: Female
  Weight: 75 kg

DRUGS (4)
  1. PEGINTERFERON ALFA-2A [Suspect]
     Route: 058
     Dates: start: 20100416
  2. RIBAVIRIN [Suspect]
     Route: 048
     Dates: start: 20100416
  3. INVIRASE [Suspect]
     Indication: HIV INFECTION
     Route: 048
     Dates: start: 20051007
  4. KALETRA [Concomitant]
     Indication: HIV INFECTION
     Dosage: TDD 800 MG LOPINAVIR/ 200 MG RITONAVIR
     Route: 048
     Dates: start: 20051007

REACTIONS (2)
  - ENDOMETRIOSIS [None]
  - VAGINAL HAEMORRHAGE [None]
